FAERS Safety Report 4446392-9 (Version None)
Quarter: 2004Q3

REPORT INFORMATION
  Report Type: 
  Country: None (occurrence: None)
  Receive Date: 20040907
  Receipt Date: 20040825
  Transmission Date: 20050211
  Serious: Yes (Hospitalization)
  Sender: FDA-Public Use
  Company Number: 04P-163-0271450-00

PATIENT
  Age: 71 Year
  Sex: Female
  Weight: 59.4212 kg

DRUGS (9)
  1. HUMIRA [Suspect]
     Indication: RHEUMATOID ARTHRITIS
     Dosage: 40 MG, 1 IN 2 WK, SUBCUTANEOUS
     Route: 058
     Dates: start: 20030405, end: 20040617
  2. PREDNISONE [Concomitant]
  3. GLUCOPHAGE [Concomitant]
  4. FOLIC ACID [Concomitant]
  5. METHOTREXATE [Concomitant]
  6. OXYCOCET [Concomitant]
  7. METHADONE HCL [Concomitant]
  8. GABAPENTIN [Concomitant]
  9. LEVOTHYROXINE SODIUM [Concomitant]

REACTIONS (2)
  - LOWER LIMB FRACTURE [None]
  - ROAD TRAFFIC ACCIDENT [None]
